FAERS Safety Report 24187154 (Version 1)
Quarter: 2024Q3

REPORT INFORMATION
  Report Type: Spontaneous
  Country: GB (occurrence: GB)
  Receive Date: 20240808
  Receipt Date: 20240808
  Transmission Date: 20241017
  Serious: Yes (Other)
  Sender: MSN LABORATORIES
  Company Number: None

PATIENT

DRUGS (3)
  1. ATORVASTATIN [Suspect]
     Active Substance: ATORVASTATIN
     Indication: Blood cholesterol increased
     Dosage: 1 X 20 MG DAILY
     Route: 065
  2. ROSUVASTATIN [Suspect]
     Active Substance: ROSUVASTATIN\ROSUVASTATIN CALCIUM
     Indication: Blood cholesterol increased
     Dosage: DAILY
     Route: 065
  3. ROSUVASTATIN [Suspect]
     Active Substance: ROSUVASTATIN\ROSUVASTATIN CALCIUM
     Dosage: REDUCED TO 2 X 5 MG A WEEK
     Route: 065

REACTIONS (11)
  - Medication error [Unknown]
  - Vitreous floaters [Not Recovered/Not Resolved]
  - Irritability [Unknown]
  - Belligerence [Unknown]
  - Cough [Unknown]
  - Muscle spasms [Unknown]
  - Memory impairment [Unknown]
  - Myalgia [Unknown]
  - Nightmare [Unknown]
  - Fatigue [Unknown]
  - Pruritus [Unknown]
